FAERS Safety Report 8318874-0 (Version None)
Quarter: 2012Q2

REPORT INFORMATION
  Report Type: 
  Country: None (occurrence: None)
  Receive Date: 20120426
  Receipt Date: 20120426
  Transmission Date: 20120825
  Serious: Yes (Disabling, Other)
  Sender: FDA-Public Use
  Company Number: None

PATIENT
  Age: 85 Year
  Sex: Male
  Weight: 79.3795 kg

DRUGS (1)
  1. LEVOFLOXACIN [Suspect]
     Indication: COUGH
     Dosage: 500MG DAILY ORAL
     Route: 048
     Dates: start: 20120201

REACTIONS (4)
  - MUSCULOSKELETAL PAIN [None]
  - MYALGIA [None]
  - GAIT DISTURBANCE [None]
  - TENDON PAIN [None]
